FAERS Safety Report 8876637 (Version 1)
Quarter: 2012Q4

REPORT INFORMATION
  Report Type: 
  Country: US (occurrence: US)
  Receive Date: 20121029
  Receipt Date: 20121029
  Transmission Date: 20130627
  Serious: Yes (Death, Hospitalization, Other)
  Sender: FDA-Public Use
  Company Number: PHHY2012US095531

PATIENT
  Age: 60 Year
  Sex: Male

DRUGS (6)
  1. SULFADIAZINE [Suspect]
     Indication: PEMPHIGUS
     Route: 061
  2. PREDNISONE [Concomitant]
     Route: 048
  3. FLUTICASONE W/FORMOTEROL [Concomitant]
  4. TIOTROPIUM [Concomitant]
  5. CLONIDINE [Concomitant]
  6. ASPIRIN [Concomitant]

REACTIONS (22)
  - Multi-organ failure [Fatal]
  - Acute respiratory distress syndrome [Fatal]
  - Tachycardia [Fatal]
  - Hypotension [Fatal]
  - Tachypnoea [Fatal]
  - Megacolon [Unknown]
  - Pseudomembranous colitis [Unknown]
  - Scab [Unknown]
  - Blister [Unknown]
  - Renal impairment [Unknown]
  - Clostridium difficile infection [Unknown]
  - Abdominal pain [Unknown]
  - Abdominal distension [Unknown]
  - Constipation [Unknown]
  - Abdominal discomfort [Unknown]
  - Abdominal tenderness [Unknown]
  - Colitis [Unknown]
  - Diarrhoea [Unknown]
  - Pyrexia [Unknown]
  - Chills [Unknown]
  - Bandaemia [Unknown]
  - Leukocytosis [Unknown]
